FAERS Safety Report 13184228 (Version 2)
Quarter: 2017Q2

REPORT INFORMATION
  Report Type: Report from Study
  Country: JP (occurrence: JP)
  Receive Date: 20170203
  Receipt Date: 20170411
  Transmission Date: 20170830
  Serious: Yes (Other)
  Sender: FDA-Public Use
  Company Number: JP-ASTELLAS-2008JP000024

PATIENT
  Age: 37 Year
  Sex: Female
  Weight: 47 kg

DRUGS (28)
  1. TACROLIMUS. [Suspect]
     Active Substance: TACROLIMUS
     Indication: LUPUS NEPHRITIS
     Route: 048
     Dates: start: 20070206, end: 20070305
  2. CYTOTEC [Suspect]
     Active Substance: MISOPROSTOL
     Indication: PROPHYLAXIS
     Dosage: 600 UG, ONCE DAILY
     Route: 048
     Dates: end: 20100202
  3. ADOFEED [Concomitant]
     Active Substance: FLURBIPROFEN
     Dosage: ADEQUATE DOSE
     Route: 061
     Dates: end: 20160524
  4. FLOMOX [Concomitant]
     Active Substance: CEFCAPENE PIVOXIL HYDROCHLORIDE HYDRATE
     Route: 048
     Dates: start: 20090106, end: 20090111
  5. FLAVERIC [Concomitant]
     Active Substance: BENPROPERINE PHOSPHATE
     Indication: UPPER RESPIRATORY TRACT INFLAMMATION
     Route: 048
     Dates: start: 20140909, end: 20140913
  6. VEEN-F [Concomitant]
     Indication: DIZZINESS
     Route: 065
     Dates: start: 20081204, end: 20081204
  7. PREDNISOLONE. [Suspect]
     Active Substance: PREDNISOLONE
     Route: 048
     Dates: start: 20120328, end: 20121225
  8. ZANTAC [Concomitant]
     Active Substance: RANITIDINE HYDROCHLORIDE
     Indication: PROPHYLAXIS
     Route: 048
     Dates: end: 20070625
  9. FLOMOX [Concomitant]
     Active Substance: CEFCAPENE PIVOXIL HYDROCHLORIDE HYDRATE
     Indication: UPPER RESPIRATORY TRACT INFECTION
     Route: 048
     Dates: start: 20080401, end: 20080406
  10. MUCODYNE [Concomitant]
     Active Substance: CARBOCYSTEINE
     Indication: UPPER RESPIRATORY TRACT INFLAMMATION
     Route: 048
     Dates: start: 20140909, end: 20140913
  11. MERISLON [Concomitant]
     Active Substance: BETAHISTINE MESILATE
     Indication: DIZZINESS
     Route: 048
     Dates: start: 20081204, end: 20081209
  12. PREDNISOLONE. [Suspect]
     Active Substance: PREDNISOLONE
     Route: 048
     Dates: start: 20111012, end: 20120327
  13. BIO-THREE [Concomitant]
     Active Substance: HERBALS
     Indication: PROPHYLAXIS
     Route: 048
     Dates: start: 20070403
  14. ADOFEED [Concomitant]
     Active Substance: FLURBIPROFEN
     Indication: SYSTEMIC LUPUS ERYTHEMATOSUS
     Route: 061
     Dates: start: 20070821
  15. VIVIANT [Concomitant]
     Active Substance: BAZEDOXIFENE
     Indication: PROPHYLAXIS
     Route: 065
     Dates: start: 20150623
  16. TACROLIMUS. [Suspect]
     Active Substance: TACROLIMUS
     Route: 048
     Dates: start: 20070306
  17. PREDNISOLONE. [Suspect]
     Active Substance: PREDNISOLONE
     Route: 048
     Dates: start: 20121226, end: 20160524
  18. PRIMPERAN [Concomitant]
     Active Substance: METOCLOPRAMIDE HYDROCHLORIDE
     Indication: DIZZINESS
     Route: 042
     Dates: start: 20081204, end: 20081204
  19. ASVERIN (TIPEPIDINE HIBENZATE) [Concomitant]
     Active Substance: TIPEPIDINE HIBENZATE
     Dosage: 0.9 G, ONCE DAILY
     Route: 048
     Dates: start: 20090106, end: 20090111
  20. ASVERIN (TIPEPIDINE HIBENZATE) [Concomitant]
     Active Substance: TIPEPIDINE HIBENZATE
     Indication: UPPER RESPIRATORY TRACT INFECTION
     Dosage: 0.9 G, ONCE DAILY
     Route: 048
     Dates: start: 20080401, end: 20080406
  21. PREDNISOLONE. [Suspect]
     Active Substance: PREDNISOLONE
     Route: 048
     Dates: start: 20110427, end: 20111011
  22. GASTER [Concomitant]
     Active Substance: FAMOTIDINE
     Indication: PROPHYLAXIS
     Route: 048
     Dates: start: 20070626
  23. SELBEX [Concomitant]
     Active Substance: TEPRENONE
     Indication: PROPHYLAXIS
     Route: 048
  24. PL [Concomitant]
     Active Substance: ACETAMINOPHEN\CAFFEINE\PROMETHAZINE\SALICYLAMIDE
     Route: 048
     Dates: start: 20090106, end: 20090111
  25. PREDNISOLONE. [Suspect]
     Active Substance: PREDNISOLONE
     Indication: LUPUS NEPHRITIS
     Route: 048
     Dates: end: 20110426
  26. PREDNISOLONE. [Suspect]
     Active Substance: PREDNISOLONE
     Route: 048
     Dates: start: 20160525
  27. PL [Concomitant]
     Active Substance: ACETAMINOPHEN\CAFFEINE\PROMETHAZINE\SALICYLAMIDE
     Indication: UPPER RESPIRATORY TRACT INFECTION
     Route: 048
     Dates: start: 20080401, end: 20080406
  28. ALFAROL [Concomitant]
     Active Substance: ALFACALCIDOL
     Indication: PROPHYLAXIS
     Dosage: 0.5 UG, ONCE DAILY
     Route: 048
     Dates: start: 20090818

REACTIONS (8)
  - Diarrhoea [Recovered/Resolved]
  - Rib fracture [Recovered/Resolved]
  - Upper respiratory tract inflammation [Recovered/Resolved]
  - Eczema [Recovered/Resolved]
  - Upper respiratory tract inflammation [Recovered/Resolved]
  - Bronchitis [Recovered/Resolved]
  - Dizziness [Recovered/Resolved]
  - Hepatic function abnormal [Recovered/Resolved]

NARRATIVE: CASE EVENT DATE: 20070403
